FAERS Safety Report 18953243 (Version 1)
Quarter: 2021Q1

REPORT INFORMATION
  Report Type: Spontaneous
  Country: US (occurrence: US)
  Receive Date: 20210228
  Receipt Date: 20210228
  Transmission Date: 20210420
  Serious: Yes (Life-Threatening, Hospitalization, Other)
  Sender: FDA-Public Use
  Company Number: None

PATIENT
  Age: 30 Year
  Sex: Male
  Weight: 63.45 kg

DRUGS (2)
  1. FLUCONAZOLE TABLETS USP 150MG GLENMARK [Suspect]
     Active Substance: FLUCONAZOLE
     Indication: FUNGAL INFECTION
     Dosage: ?          QUANTITY:1 TABLET(S);?
     Route: 048
     Dates: start: 20201011, end: 20201014
  2. LYSINE [Concomitant]
     Active Substance: LYSINE

REACTIONS (12)
  - Communication disorder [None]
  - Confusional state [None]
  - Photophobia [None]
  - Illness [None]
  - Fear [None]
  - Depressed mood [None]
  - Loss of personal independence in daily activities [None]
  - Crying [None]
  - Tongue discolouration [None]
  - Hyperhidrosis [None]
  - Headache [None]
  - Drug hypersensitivity [None]

NARRATIVE: CASE EVENT DATE: 20201011
